FAERS Safety Report 5798398-5 (Version None)
Quarter: 2008Q3

REPORT INFORMATION
  Report Type: 
  Country: None (occurrence: None)
  Receive Date: 20080702
  Receipt Date: 20080626
  Transmission Date: 20090109
  Serious: Yes (Other)
  Sender: FDA-Public Use
  Company Number: GR-ROCHE-569198

PATIENT
  Age: 67 Year
  Sex: Male
  Weight: 90 kg

DRUGS (3)
  1. BONIVA [Suspect]
     Indication: OSTEOPOROSIS
     Dosage: FILM COATED TABLETS
     Route: 048
     Dates: start: 20060601, end: 20080605
  2. CALCIORAL D3 [Concomitant]
  3. SINTROM [Concomitant]

REACTIONS (1)
  - LEUKOPENIA [None]
